FAERS Safety Report 19787740 (Version 5)
Quarter: 2023Q1

REPORT INFORMATION
  Report Type: Spontaneous
  Country: US (occurrence: US)
  Receive Date: 20210903
  Receipt Date: 20230203
  Transmission Date: 20230418
  Serious: Yes (Other)
  Sender: FDA-Public Use
  Company Number: US-DECIPHERA PHARMACEUTICALS LLC-2021US000709

PATIENT
  Sex: Female

DRUGS (2)
  1. QINLOCK [Suspect]
     Active Substance: RIPRETINIB
     Indication: Gastrointestinal stromal tumour
     Dosage: 50 MILLIGRAM, QD
     Route: 048
     Dates: start: 20210622
  2. QINLOCK [Suspect]
     Active Substance: RIPRETINIB
     Dosage: 50 MILLIGRAM, QD
     Route: 048

REACTIONS (8)
  - Squamous cell carcinoma of skin [Unknown]
  - Oral disorder [Unknown]
  - Dental plaque [Unknown]
  - Pain in extremity [Unknown]
  - Skin papilloma [Unknown]
  - Hyperkeratosis [Unknown]
  - Palmar-plantar erythrodysaesthesia syndrome [Unknown]
  - Underdose [Unknown]

NARRATIVE: CASE EVENT DATE: 20210101
